FAERS Safety Report 13340088 (Version 3)
Quarter: 2017Q2

REPORT INFORMATION
  Report Type: Spontaneous
  Country: BE (occurrence: BE)
  Receive Date: 20170316
  Receipt Date: 20170615
  Transmission Date: 20170830
  Serious: Yes (Other)
  Sender: FDA-Public Use
  Company Number: BE-ASTRAZENECA-2017SE26614

PATIENT
  Age: 23935 Day
  Sex: Female
  Weight: 73 kg

DRUGS (2)
  1. CRESTOR [Suspect]
     Active Substance: ROSUVASTATIN CALCIUM
     Indication: BLOOD CHOLESTEROL INCREASED
     Dosage: 10.0MG UNKNOWN
     Route: 048
     Dates: start: 201606
  2. CRESTOR [Suspect]
     Active Substance: ROSUVASTATIN CALCIUM
     Indication: BLOOD CHOLESTEROL INCREASED
     Dosage: 20.0MG UNKNOWN
     Route: 048
     Dates: end: 201702

REACTIONS (14)
  - Spinal fracture [Unknown]
  - Fall [Unknown]
  - Disturbance in attention [Unknown]
  - Musculoskeletal pain [Recovering/Resolving]
  - Palpitations [Not Recovered/Not Resolved]
  - Mood altered [Unknown]
  - Muscle spasms [Recovering/Resolving]
  - Pain in extremity [Recovering/Resolving]
  - Chronic fatigue syndrome [Not Recovered/Not Resolved]
  - Sleep disorder due to general medical condition, insomnia type [Unknown]
  - Limb asymmetry [Not Recovered/Not Resolved]
  - Sedation [Unknown]
  - Suicidal ideation [Not Recovered/Not Resolved]
  - Arthralgia [Unknown]

NARRATIVE: CASE EVENT DATE: 20170402
